FAERS Safety Report 15353958 (Version 1)
Quarter: 2018Q3

REPORT INFORMATION
  Report Type: Spontaneous
  Country: US (occurrence: US)
  Receive Date: 20180905
  Receipt Date: 20180905
  Transmission Date: 20181010
  Serious: Yes (Other)
  Sender: FDA-Public Use
  Company Number: US-JNJFOC-20180818733

PATIENT
  Sex: Male

DRUGS (4)
  1. ELIQUIS [Concomitant]
     Active Substance: APIXABAN
     Indication: DEEP VEIN THROMBOSIS
     Route: 065
  2. ZYTIGA [Suspect]
     Active Substance: ABIRATERONE ACETATE
     Indication: PROSTATE CANCER
     Route: 048
  3. JEVTANA [Concomitant]
     Active Substance: CABAZITAXEL
     Indication: PROSTATE CANCER
     Route: 065
  4. MULTAQ [Concomitant]
     Active Substance: DRONEDARONE
     Route: 065

REACTIONS (1)
  - Atrial fibrillation [Unknown]
